FAERS Safety Report 14506703 (Version 3)
Quarter: 2018Q1

REPORT INFORMATION
  Report Type: Report from Study
  Country: CA (occurrence: CA)
  Receive Date: 20180208
  Receipt Date: 20180319
  Transmission Date: 20180509
  Serious: Yes (Hospitalization, Other)
  Sender: FDA-Public Use
  Company Number: CA-JNJFOC-20180209332

PATIENT
  Age: 16 Year
  Sex: Female
  Weight: 49 kg

DRUGS (2)
  1. REMICADE [Suspect]
     Active Substance: INFLIXIMAB
     Indication: COLITIS ULCERATIVE
     Route: 042
     Dates: start: 20180214
  2. REMICADE [Suspect]
     Active Substance: INFLIXIMAB
     Indication: COLITIS ULCERATIVE
     Route: 042
     Dates: start: 20161023

REACTIONS (9)
  - General physical health deterioration [Unknown]
  - Diarrhoea [Recovering/Resolving]
  - Hyperhidrosis [Unknown]
  - Abdominal pain [Recovering/Resolving]
  - Feeling hot [Unknown]
  - Nausea [Recovering/Resolving]
  - Haematochezia [Recovering/Resolving]
  - Clostridium difficile infection [Unknown]
  - Mucous stools [Unknown]

NARRATIVE: CASE EVENT DATE: 201801
